FAERS Safety Report 16463788 (Version 8)
Quarter: 2022Q4

REPORT INFORMATION
  Report Type: Spontaneous
  Country: US (occurrence: US)
  Receive Date: 20190621
  Receipt Date: 20221215
  Transmission Date: 20230112
  Serious: Yes (Other)
  Sender: FDA-Public Use
  Company Number: US-PFIZER INC-2019267737

PATIENT
  Age: 54 Year
  Sex: Male

DRUGS (1)
  1. BENEFIX [Suspect]
     Active Substance: COAGULATION FACTOR IX RECOMBINANT HUMAN\ISOPROPYL ALCOHOL
     Indication: Haemorrhage
     Dosage: 8900 U PRN (AS NEEDED) BLEED, ONLY TAKE IF HAVING A BLEED/8900 U (+/-10%) DAILY AS NEEDED
     Route: 042

REACTIONS (3)
  - Haemorrhage [Recovered/Resolved]
  - Drug ineffective [Unknown]
  - Joint injury [Unknown]

NARRATIVE: CASE EVENT DATE: 20221117
